FAERS Safety Report 16989727 (Version 1)
Quarter: 2019Q4

REPORT INFORMATION
  Report Type: Spontaneous
  Country: DK (occurrence: DK)
  Receive Date: 20191104
  Receipt Date: 20191104
  Transmission Date: 20200122
  Serious: Yes (Hospitalization)
  Sender: FDA-Public Use
  Company Number: DK-ENDO PHARMACEUTICALS INC-2019-109246

PATIENT
  Age: 55 Year
  Sex: Male
  Weight: 70 kg

DRUGS (1)
  1. AVEED [Suspect]
     Active Substance: TESTOSTERONE UNDECANOATE
     Indication: HYPOGONADISM MALE
     Dosage: 1000 MG, UNKNOWN
     Route: 030
     Dates: start: 20180502, end: 20190822

REACTIONS (1)
  - Priapism [Recovering/Resolving]

NARRATIVE: CASE EVENT DATE: 20190822
